FAERS Safety Report 15014987 (Version 3)
Quarter: 2018Q3

REPORT INFORMATION
  Report Type: Spontaneous
  Country: BE (occurrence: BE)
  Receive Date: 20180615
  Receipt Date: 20180706
  Transmission Date: 20181010
  Serious: Yes (Death, Life-Threatening, Hospitalization, Other)
  Sender: FDA-Public Use
  Company Number: BE-ELI_LILLY_AND_COMPANY-BE201806003587

PATIENT
  Age: 24 Year
  Sex: Male
  Weight: 76 kg

DRUGS (15)
  1. ZYPREXA [Suspect]
     Active Substance: OLANZAPINE
     Dosage: UNK, DAILY
     Route: 048
     Dates: start: 20141223, end: 20150209
  2. XEPLION [Suspect]
     Active Substance: PALIPERIDONE PALMITATE
     Dosage: 100 MG, UNKNOWN
     Route: 030
     Dates: start: 20150115, end: 20150115
  3. XEPLION [Suspect]
     Active Substance: PALIPERIDONE PALMITATE
     Dosage: UNK UNK, UNKNOWN
     Route: 030
     Dates: end: 20150211
  4. XYZALL [Concomitant]
     Active Substance: LEVOCETIRIZINE DIHYDROCHLORIDE
     Indication: RASH
     Dosage: 5 MG, DAILY
     Route: 048
     Dates: start: 20150203, end: 20150207
  5. INVEGA [Suspect]
     Active Substance: PALIPERIDONE
     Indication: SCHIZOPHRENIA
     Dosage: 1 DF, DAILY
     Route: 048
     Dates: start: 20141223, end: 20150107
  6. INVEGA [Suspect]
     Active Substance: PALIPERIDONE
     Dosage: UNK UNK, UNKNOWN
     Route: 048
     Dates: end: 20150211
  7. DERMALEX [Concomitant]
     Indication: DRY SKIN
     Dosage: UNK UNK, DAILY
     Route: 003
     Dates: start: 20141225, end: 20150104
  8. MEDROL [Concomitant]
     Active Substance: METHYLPREDNISOLONE
     Dosage: 32 UNK, UNK
     Route: 048
     Dates: start: 20150203, end: 20150203
  9. ZYPREXA [Suspect]
     Active Substance: OLANZAPINE
     Dosage: 10 MG, DAILY
     Route: 048
     Dates: end: 20150211
  10. TRANXENE [Suspect]
     Active Substance: CLORAZEPATE DIPOTASSIUM
     Indication: ANXIETY
     Dosage: 40 MG, DAILY
     Route: 048
     Dates: start: 20141223, end: 20150209
  11. MEDROL [Concomitant]
     Active Substance: METHYLPREDNISOLONE
     Indication: RASH
     Dosage: 16 MG, UNKNOWN
     Route: 048
     Dates: start: 20150204, end: 20150205
  12. ZYPREXA [Suspect]
     Active Substance: OLANZAPINE
     Indication: SCHIZOPHRENIA
     Dosage: 10 MG, DAILY
     Route: 048
     Dates: start: 20141223, end: 20150108
  13. CLORAZEPATE [Concomitant]
     Active Substance: CLORAZEPATE DIPOTASSIUM
     Indication: SCHIZOPHRENIA
     Dosage: 5 MG, DAILY
     Route: 065
     Dates: start: 20141223, end: 20150108
  14. PARACETAMOL [Concomitant]
     Active Substance: ACETAMINOPHEN
     Indication: HEADACHE
     Dosage: 1 G, DAILY
     Route: 048
     Dates: start: 20150207, end: 20150207
  15. XEPLION [Suspect]
     Active Substance: PALIPERIDONE PALMITATE
     Indication: SCHIZOPHRENIA
     Dosage: 150 MG, UNKNOWN
     Route: 030
     Dates: start: 20150108, end: 20150108

REACTIONS (4)
  - Rash [Recovering/Resolving]
  - Toxic epidermal necrolysis [Fatal]
  - Weight decreased [Recovering/Resolving]
  - Diarrhoea [Recovering/Resolving]

NARRATIVE: CASE EVENT DATE: 20150202
